FAERS Safety Report 8078212-8 (Version None)
Quarter: 2012Q1

REPORT INFORMATION
  Report Type: 
  Country: None (occurrence: None)
  Receive Date: 20120127
  Receipt Date: 20110304
  Transmission Date: 20120608
  Serious: No
  Sender: FDA-Public Use
  Company Number: US-ABBOTT-10P-163-0693486-00

PATIENT
  Age: 39 Year
  Sex: Female

DRUGS (5)
  1. HUMIRA [Suspect]
     Indication: CROHN'S DISEASE
     Dates: start: 20101124
  2. IMURAN [Concomitant]
     Indication: PRODUCT USED FOR UNKNOWN INDICATION
  3. HUMIRA [Suspect]
     Dosage: FOR FOUR WEEKS
  4. PREDNISONE [Concomitant]
     Indication: IMMUNOSUPPRESSION
     Route: 048
  5. HUMIRA [Suspect]

REACTIONS (5)
  - GASTROINTESTINAL INFLAMMATION [None]
  - GASTROINTESTINAL SOUNDS ABNORMAL [None]
  - INJECTION SITE HAEMORRHAGE [None]
  - ABDOMINAL DISTENSION [None]
  - INJECTION SITE PAIN [None]
